FAERS Safety Report 7298451-3 (Version None)
Quarter: 2011Q1

REPORT INFORMATION
  Report Type: 
  Country: None (occurrence: None)
  Receive Date: 20110217
  Receipt Date: 20110207
  Transmission Date: 20110831
  Serious: Yes (Death, Hospitalization, Other)
  Sender: FDA-Public Use
  Company Number: JP-BAYER-2010-001890

PATIENT
  Sex: Female
  Weight: 43 kg

DRUGS (56)
  1. ADELAVIN [Concomitant]
     Dosage: DAILY DOSE 2 ML
     Route: 042
     Dates: start: 20110112, end: 20110112
  2. ANEXATE [Concomitant]
     Indication: PREMEDICATION
     Dosage: 0.5 MG, QD
     Route: 042
     Dates: start: 20101122, end: 20101122
  3. URSO 250 [Concomitant]
     Dosage: 600 MG, QD
     Route: 048
     Dates: start: 20101101
  4. DORMICUM [Concomitant]
     Indication: PREMEDICATION
     Dosage: 2.5 MG, QD
     Route: 042
     Dates: start: 20101122, end: 20101122
  5. PARIET [Concomitant]
     Indication: GASTRIC ULCER
     Dosage: 20 MG, QD
     Route: 048
     Dates: start: 20101117
  6. SODIUM CHLORIDE [Concomitant]
     Dosage: 20 ML, UNK
     Route: 042
     Dates: start: 20101122, end: 20101122
  7. ASCORBIC ACID [Concomitant]
     Indication: VITAMIN SUPPLEMENTATION
     Dosage: DAILY DOSE 2000 MG
     Route: 042
     Dates: start: 20110113
  8. ALDACTONE [Concomitant]
     Indication: POLYURIA
     Dosage: 50 MG, QD
     Route: 048
     Dates: start: 20101101
  9. VEEN D [Concomitant]
     Indication: FLUID REPLACEMENT
     Dosage: 500 ML, QD
     Route: 042
     Dates: start: 20101201, end: 20101201
  10. VITAMEDIN [Concomitant]
     Indication: VITAMIN SUPPLEMENTATION
     Dosage: 1 DF, QD
     Route: 042
     Dates: start: 20101101
  11. LASIX [Concomitant]
     Indication: POLYURIA
     Dosage: 40 MG, QD
     Route: 048
     Dates: start: 20101101
  12. NEO-MINOPHAGEN C [Concomitant]
     Dosage: 6 DF, QD
     Route: 042
     Dates: start: 20110112, end: 20110112
  13. VOLTAREN [Concomitant]
     Indication: ANALGESIC THERAPY
     Dosage: DAILY DOSE 50 MG
     Route: 054
     Dates: start: 20101203
  14. ALBUMIN HUMAN [ALBUMEN] [Concomitant]
     Dosage: 100 ML, UNK
     Route: 042
     Dates: start: 20101101, end: 20101103
  15. VEEN D [Concomitant]
     Dosage: 1500 ML, QD
     Route: 042
     Dates: start: 20110112
  16. CRAVIT [Concomitant]
     Indication: INFLAMMATION
     Dosage: 500 MG, QD
     Route: 048
     Dates: start: 20101115
  17. JUZENTAIHOTO [Concomitant]
     Dosage: 7.5 G, QD
     Route: 048
     Dates: start: 20101101
  18. HERBAL PREPARATION [Concomitant]
     Indication: LIVER DISORDER
     Dosage: 7.5 G, QD
     Route: 048
     Dates: start: 20101101
  19. VITAMEDIN [Concomitant]
     Dosage: 2 DF, QD
     Route: 042
     Dates: start: 20110112, end: 20110112
  20. VITAMEDIN [Concomitant]
     Dosage: 1 DF, QD
     Route: 042
     Dates: start: 20110113
  21. PURSENNID [Concomitant]
     Indication: CONSTIPATION
     Dosage: 24 MG, QD
     Route: 048
     Dates: start: 20101106
  22. LOXONIN [Concomitant]
     Dosage: 180 MG, QD
     Route: 048
     Dates: start: 20101112
  23. NEO-MINOPHAGEN C [Concomitant]
     Indication: PROPHYLAXIS
     Dosage: 40 ML, QD
     Route: 042
     Dates: start: 20101101
  24. LEPETAN [Concomitant]
     Indication: ANALGESIC THERAPY
     Dosage: DAILY DOSE .2 MG
     Route: 054
     Dates: start: 20101203
  25. UNCODEABLE ^UNCLASSIFIABLE^ [Concomitant]
     Indication: NUTRITIONAL SUPPORT
     Dosage: DAILY DOSE 1200 ML
     Dates: start: 20101126
  26. ADELAVIN [Concomitant]
     Indication: LIVER DISORDER
     Dosage: 1 ML, QD
     Route: 042
     Dates: start: 20101101
  27. SWORD [Concomitant]
     Indication: INFLAMMATION
     Dosage: 200 MG, QD
     Route: 048
     Dates: start: 20100101, end: 20101105
  28. SOLDEM 3A [Concomitant]
     Dosage: DAILY DOSE 200 ML
     Route: 042
     Dates: start: 20110112, end: 20110112
  29. DAIO-KANZO-TO [Concomitant]
     Indication: ABDOMINAL DISTENSION
     Dosage: 7.5 G, QD
     Route: 048
     Dates: start: 20101101
  30. MAGMITT [Concomitant]
     Indication: CONSTIPATION
     Dosage: 990 MG, QD
     Route: 048
     Dates: start: 20101106
  31. MUCOSTA [Concomitant]
     Indication: GASTRITIS PROPHYLAXIS
     Dosage: 330 MG, QD
     Route: 048
     Dates: start: 20100101
  32. LASIX [Concomitant]
     Dosage: 40 MG, QD
     Route: 042
     Dates: start: 20101101, end: 20101103
  33. NEO-MINOPHAGEN C [Concomitant]
     Dosage: 4 DF, QD
     Route: 042
     Dates: start: 20110113
  34. SODIUM CHLORIDE [Concomitant]
     Dosage: 100 ML, UNK
     Route: 042
     Dates: start: 20101108, end: 20101114
  35. RED BLOOD CELLS, CONCENTRATED [Concomitant]
     Dosage: 4 U, UNK
     Route: 042
     Dates: start: 20101118, end: 20101118
  36. NEXAVAR [Suspect]
     Dosage: 400 MG, QD
     Route: 048
     Dates: start: 20101123, end: 20110112
  37. CEFOCEF [Concomitant]
     Indication: INFLAMMATION
     Dosage: 1 G, QD
     Route: 042
     Dates: start: 20101108, end: 20101114
  38. BARACLUDE [Concomitant]
     Indication: HEPATITIS B
     Dosage: 0.5 MG, UNK
     Route: 048
     Dates: start: 20101101
  39. NEXAVAR [Suspect]
     Dosage: 800 MG, QD
     Dates: start: 20101114
  40. GASMOTIN [Concomitant]
     Indication: ABDOMINAL DISCOMFORT
     Dosage: 15 MG, QD
     Route: 048
     Dates: start: 20101106
  41. TATHION [Concomitant]
     Dosage: 200 MG, QD
     Route: 042
     Dates: start: 20110112, end: 20110112
  42. TATHION [Concomitant]
     Dosage: 100 MG, QD
     Route: 042
     Dates: start: 20110113
  43. LOXONIN [Concomitant]
     Indication: ANALGESIC THERAPY
     Dosage: 60 MG, QD
     Route: 048
     Dates: start: 20101108, end: 20101108
  44. UREPEARL [Concomitant]
     Dosage: UNK
     Route: 061
     Dates: start: 20101101
  45. CEFOCEF [Concomitant]
     Dosage: DAILY DOSE 1 G
     Route: 042
     Dates: start: 20110112
  46. LAXOBERON [Concomitant]
     Indication: CONSTIPATION
     Dosage: 15 GTT, QD
     Route: 048
     Dates: start: 20101127
  47. UNCODEABLE ^UNCLASSIFIABLE^ [Concomitant]
     Indication: LIVER DISORDER
     Dosage: 7.5 G, QD
     Route: 048
     Dates: start: 20101101
  48. HEPARIN SODIUM [Concomitant]
     Dosage: 10 ML, UNK
     Route: 042
     Dates: start: 20101101
  49. INDIGO CARMINE [Concomitant]
     Dosage: 20 MG, UNK
     Route: 042
     Dates: start: 20101122, end: 20101122
  50. NEXAVAR [Suspect]
     Indication: HEPATIC NEOPLASM MALIGNANT
     Dosage: 400 MG, QD
     Route: 048
     Dates: start: 20101102
  51. ADELAVIN [Concomitant]
     Dosage: DAILY DOSE 1 ML
     Route: 042
     Dates: start: 20110113
  52. SOLDEM 3A [Concomitant]
     Indication: FLUID REPLACEMENT
     Dosage: 200 ML, QD
     Route: 042
     Dates: start: 20101101
  53. TATHION [Concomitant]
     Indication: LIVER DISORDER
     Dosage: 100 MG, QD
     Route: 042
     Dates: start: 20101101
  54. NAIXAN [Concomitant]
     Indication: TUMOUR ASSOCIATED FEVER
     Dosage: 300 MG, QD
     Route: 048
     Dates: start: 20100101
  55. SODIUM CHLORIDE [Concomitant]
     Indication: MEDICATION DILUTION
     Dosage: DAILY DOSE 100 ML
     Route: 042
     Dates: start: 20110112
  56. HEPARIN SODIUM [Concomitant]
     Dosage: 10 ML, UNK
     Route: 042
     Dates: start: 20110112, end: 20110112

REACTIONS (6)
  - GASTRIC ULCER [None]
  - DEHYDRATION [None]
  - DEPRESSION [None]
  - PALMAR-PLANTAR ERYTHRODYSAESTHESIA SYNDROME [None]
  - GENERAL PHYSICAL HEALTH DETERIORATION [None]
  - STOMATITIS [None]
